FAERS Safety Report 11298733 (Version 1)
Quarter: 2015Q3

REPORT INFORMATION
  Report Type: Spontaneous
  Country: US (occurrence: US)
  Receive Date: 20150722
  Receipt Date: 20150722
  Transmission Date: 20151125
  Serious: Yes (Death, Hospitalization, Other)
  Sender: FDA-Public Use
  Company Number: US-ELI_LILLY_AND_COMPANY-US201203006775

PATIENT
  Age: 66 Year
  Sex: Male

DRUGS (4)
  1. INTEGRILIN [Concomitant]
     Active Substance: EPTIFIBATIDE
     Indication: PERCUTANEOUS CORONARY INTERVENTION
     Dosage: UNK, UNKNOWN
     Route: 042
     Dates: start: 20120320
  2. LOVENOX [Concomitant]
     Active Substance: ENOXAPARIN SODIUM
     Indication: ACUTE CORONARY SYNDROME
     Dosage: UNK, UNKNOWN
     Route: 042
     Dates: start: 20120320
  3. ANGIOMAX [Concomitant]
     Active Substance: BIVALIRUDIN
     Indication: PERCUTANEOUS CORONARY INTERVENTION
     Dosage: UNK, UNKNOWN
     Route: 042
     Dates: start: 20120320
  4. EFFIENT [Suspect]
     Active Substance: PRASUGREL HYDROCHLORIDE
     Indication: PERCUTANEOUS CORONARY INTERVENTION
     Dosage: 60 MG, LOADING DOSE
     Dates: start: 20120320, end: 20120320

REACTIONS (3)
  - Cerebral haemorrhage [Fatal]
  - Haemorrhage coronary artery [Fatal]
  - Intraventricular haemorrhage [Unknown]

NARRATIVE: CASE EVENT DATE: 20120320
